FAERS Safety Report 6686915-2 (Version None)
Quarter: 2010Q2

REPORT INFORMATION
  Report Type: 
  Country: None (occurrence: None)
  Receive Date: 20100414
  Receipt Date: 20100405
  Transmission Date: 20101027
  Serious: Yes (Hospitalization)
  Sender: FDA-Public Use
  Company Number: 2010JP001442

PATIENT
  Age: 53 Year
  Sex: Female
  Weight: 57.6 kg

DRUGS (5)
  1. VESICARE [Suspect]
     Indication: HYPERTONIC BLADDER
     Dosage: 5MG UID/QD, ORAL
     Route: 048
  2. ETODOLAC [Suspect]
     Indication: RHEUMATOID ARTHRITIS
     Dosage: 200 MG, UID/QD, ORAL
     Route: 048
  3. CYTOTEC [Suspect]
     Indication: RHEUMATOID ARTHRITIS
     Dosage: 200UG, UID/QD, ORAL
     Route: 048
  4. PREDNISOLONE TAB [Suspect]
     Indication: RHEUMATOID ARTHRITIS
     Dosage: 1.75 MG, QID, ORAL
     Route: 048
  5. ACTEMRA [Suspect]
     Indication: RHEUMATOID ARTHRITIS
     Dosage: IV, NOS
     Route: 042
     Dates: start: 20090717

REACTIONS (1)
  - ANAEMIA [None]
